FAERS Safety Report 6875613-8 (Version None)
Quarter: 2010Q3

REPORT INFORMATION
  Report Type: 
  Country: None (occurrence: None)
  Receive Date: 20100727
  Receipt Date: 20100719
  Transmission Date: 20110219
  Serious: Yes (Other)
  Sender: FDA-Public Use
  Company Number: US-JNJFOC-20091203637

PATIENT
  Sex: Male
  Weight: 108.86 kg

DRUGS (9)
  1. DURAGESIC-100 [Suspect]
     Indication: CHEST PAIN
     Route: 062
  2. DURAGESIC-100 [Suspect]
     Indication: PAIN
     Route: 062
  3. DURAGESIC-100 [Suspect]
     Route: 062
  4. SIMVASTATIN [Concomitant]
     Route: 048
  5. PAROXETINE HCL [Concomitant]
     Route: 048
  6. ASPIRIN [Concomitant]
     Route: 048
  7. LISINOPRIL [Concomitant]
     Route: 048
  8. SPIRONOLACTONE [Concomitant]
     Route: 048
  9. CARVEDILOL [Concomitant]
     Route: 048

REACTIONS (3)
  - DRUG EFFECT DECREASED [None]
  - PRODUCT QUALITY ISSUE [None]
  - WEIGHT FLUCTUATION [None]
